FAERS Safety Report 23252377 (Version 1)
Quarter: 2023Q4

REPORT INFORMATION
  Report Type: Spontaneous
  Country: US (occurrence: None)
  Receive Date: 20231130
  Receipt Date: 20231130
  Transmission Date: 20240110
  Serious: Yes (Hospitalization)
  Sender: FDA-Public Use
  Company Number: None

PATIENT
  Age: 54 Year
  Sex: Male

DRUGS (6)
  1. DARUNAVIR 800MG [Suspect]
     Active Substance: DARUNAVIR ETHANOLATE
     Dosage: FREQUENCY : DAILY;?
     Route: 048
     Dates: start: 202306
  2. RITONAVIR [Suspect]
     Active Substance: RITONAVIR
     Dosage: OTHER FREQUENCY : NIGHTLY;?
     Route: 048
     Dates: start: 202303
  3. ISENTRESS [Concomitant]
  4. HEMLIBRA SDV [Concomitant]
  5. SELZENTRY [Concomitant]
  6. XYNTHA SOLOF INJ [Concomitant]

REACTIONS (4)
  - Pancreatitis [None]
  - Fall [None]
  - Limb injury [None]
  - Haemorrhage [None]

NARRATIVE: CASE EVENT DATE: 20231113
